FAERS Safety Report 8802091 (Version 2)
Quarter: 2012Q4

REPORT INFORMATION
  Report Type: 
  Country: DE (occurrence: DE)
  Receive Date: 20120921
  Receipt Date: 20120925
  Transmission Date: 20130627
  Serious: Yes (Hospitalization)
  Sender: FDA-Public Use
  Company Number: DE-TEVA-358332GER

PATIENT
  Sex: Male

DRUGS (3)
  1. COPAXONE [Suspect]
     Dates: start: 2010
  2. DOXEPIN [Concomitant]
  3. OXAZEPAM [Concomitant]

REACTIONS (2)
  - Cardiovascular disorder [Unknown]
  - Panic attack [Unknown]
